FAERS Safety Report 8043207-7 (Version None)
Quarter: 2012Q1

REPORT INFORMATION
  Report Type: 
  Country: None (occurrence: None)
  Receive Date: 20120112
  Receipt Date: 20111201
  Transmission Date: 20120608
  Serious: Yes (Death, Hospitalization, Other)
  Sender: FDA-Public Use
  Company Number: BE-MEDIMMUNE-MEDI-0013929

PATIENT
  Sex: Male

DRUGS (2)
  1. SYNAGIS [Suspect]
     Dates: start: 20111031, end: 20111031
  2. SYNAGIS [Suspect]
     Dates: start: 20111115, end: 20111115

REACTIONS (1)
  - OXYGEN SUPPLEMENTATION [None]
